FAERS Safety Report 10888811 (Version 2)
Quarter: 2015Q2

REPORT INFORMATION
  Report Type: Report from Study
  Country: GB (occurrence: GB)
  Receive Date: 20150305
  Receipt Date: 20150605
  Transmission Date: 20150821
  Serious: Yes (Hospitalization, Other)
  Sender: FDA-Public Use
  Company Number: GB-ABBVIE-15K-167-1354332-00

PATIENT
  Age: 33 Year
  Sex: Female
  Weight: 59 kg

DRUGS (2)
  1. METHOTREXATE [Concomitant]
     Active Substance: METHOTREXATE
     Indication: RHEUMATOID ARTHRITIS
  2. HUMIRA [Suspect]
     Active Substance: ADALIMUMAB
     Indication: CROHN^S DISEASE
     Route: 058
     Dates: start: 20101103

REACTIONS (6)
  - Fall [Unknown]
  - Oropharyngeal pain [Unknown]
  - Joint swelling [Unknown]
  - Varicella [Unknown]
  - Infection transmission via personal contact [Unknown]
  - Rash [Unknown]

NARRATIVE: CASE EVENT DATE: 2014
